FAERS Safety Report 19256830 (Version 1)
Quarter: 2021Q2

REPORT INFORMATION
  Report Type: Spontaneous
  Country: US (occurrence: US)
  Receive Date: 20210513
  Receipt Date: 20210513
  Transmission Date: 20210717
  Serious: Yes (Other)
  Sender: FDA-Public Use
  Company Number: US-JNJFOC-20210509715

PATIENT
  Age: 21 Year
  Sex: Female

DRUGS (1)
  1. RISPERDAL [Suspect]
     Active Substance: RISPERIDONE
     Indication: SCHIZOPHRENIA
     Dosage: 1MG IN THE MORNING AND 3MG AT BEDTIME
     Route: 065

REACTIONS (4)
  - Drug ineffective [Unknown]
  - Premature labour [Unknown]
  - Catatonia [Unknown]
  - Exposure during pregnancy [Unknown]
